FAERS Safety Report 5430303-3 (Version None)
Quarter: 2007Q3

REPORT INFORMATION
  Report Type: 
  Country: None (occurrence: None)
  Receive Date: 20070828
  Receipt Date: 20070816
  Transmission Date: 20080115
  Serious: Yes (Hospitalization, Other)
  Sender: FDA-Public Use
  Company Number: PERIO-2007-0016

PATIENT
  Age: 47 Year
  Sex: Female
  Weight: 77 kg

DRUGS (6)
  1. PERIOSTAT [Suspect]
     Indication: PERIODONTITIS
     Dosage: 20 MG, BID, PO
     Route: 048
     Dates: start: 20070616, end: 20070804
  2. ATENOLOL [Concomitant]
  3. CEFACLOR [Concomitant]
  4. LEVOTHYROXINE SODIUM [Concomitant]
  5. SIMVASTATIN [Concomitant]
  6. SUMATRIPTAN SUCCINATE [Concomitant]

REACTIONS (3)
  - CHEST PAIN [None]
  - OESOPHAGEAL ULCER [None]
  - OESOPHAGITIS [None]
